FAERS Safety Report 7314369-1 (Version None)
Quarter: 2011Q1

REPORT INFORMATION
  Report Type: 
  Country: None (occurrence: None)
  Receive Date: 20110225
  Receipt Date: 20100823
  Transmission Date: 20110831
  Serious: No
  Sender: FDA-Public Use
  Company Number: US-MYLANLABS-2010S1014073

PATIENT
  Age: 20 Year
  Sex: Female
  Weight: 58.97 kg

DRUGS (3)
  1. ORTHO-CEPT [Concomitant]
     Route: 048
  2. AMNESTEEM [Suspect]
     Indication: ACNE CYSTIC
     Route: 048
     Dates: start: 20100520, end: 20100730
  3. ZITHROMAX [Concomitant]

REACTIONS (2)
  - GASTROINTESTINAL DISORDER [None]
  - DIARRHOEA [None]
